FAERS Safety Report 4684997-0 (Version None)
Quarter: 2005Q2

REPORT INFORMATION
  Report Type: 
  Country: None (occurrence: None)
  Receive Date: 20050608
  Receipt Date: 20050527
  Transmission Date: 20051028
  Serious: Yes (Other)
  Sender: FDA-Public Use
  Company Number: JP-JNJFOC-20050106960

PATIENT
  Sex: Female
  Weight: 58 kg

DRUGS (25)
  1. REMICADE [Suspect]
     Route: 042
  2. REMICADE [Suspect]
     Route: 042
  3. REMICADE [Suspect]
     Indication: RHEUMATOID ARTHRITIS
     Route: 042
  4. PREDNISONE TAB [Suspect]
     Route: 049
  5. PREDNISONE TAB [Suspect]
     Route: 049
  6. PREDNISONE TAB [Suspect]
     Indication: RHEUMATOID ARTHRITIS
     Route: 049
  7. RHEUMATREX [Suspect]
     Route: 049
  8. RHEUMATREX [Suspect]
     Route: 049
  9. RHEUMATREX [Suspect]
     Indication: RHEUMATOID ARTHRITIS
     Route: 049
  10. LOXONIN [Concomitant]
     Route: 049
  11. VOLTAREN [Concomitant]
     Indication: RHEUMATOID ARTHRITIS
  12. FOLIAMIN [Concomitant]
     Route: 049
  13. ALFAROL [Concomitant]
     Indication: OSTEOPOROSIS
     Route: 049
  14. BENET [Concomitant]
     Indication: OSTEOPOROSIS
     Route: 049
  15. ISONIAZID [Concomitant]
     Indication: TUBERCULOSIS PROPHYLAXIS
     Route: 049
  16. CYTOTEC [Concomitant]
     Indication: GASTRITIS
     Route: 049
  17. ACINON [Concomitant]
     Indication: GASTRITIS
     Route: 049
  18. MEVALOTIN [Concomitant]
     Route: 049
  19. LANSAP [Concomitant]
     Dosage: 1 SHEET
     Route: 049
  20. DIDRONEL [Concomitant]
     Indication: OSTEOPOROSIS
     Route: 049
  21. CLARITHROMYCIN [Concomitant]
  22. LANSOPRAZOLE [Concomitant]
  23. AMOXICILLIN [Concomitant]
  24. LOXOPROFEN [Concomitant]
  25. SODIUM RISEDRONATE [Concomitant]

REACTIONS (1)
  - MYCOBACTERIUM AVIUM COMPLEX INFECTION [None]
